FAERS Safety Report 8803548 (Version 2)
Quarter: 2012Q4

REPORT INFORMATION
  Report Type: 
  Country: US (occurrence: US)
  Receive Date: 20120924
  Receipt Date: 20121024
  Transmission Date: 20130627
  Serious: No
  Sender: FDA-Public Use
  Company Number: US-PFIZER INC-2012235050

PATIENT
  Age: 68 Year
  Sex: Female
  Weight: 70.29 kg

DRUGS (11)
  1. LYRICA [Suspect]
     Indication: NERVE INJURY
     Dosage: UNK
     Route: 048
     Dates: start: 2010, end: 2010
  2. LYRICA [Suspect]
     Indication: NEUROPATHY PERIPHERAL
     Dosage: 25 mg, 1x/day
     Route: 048
     Dates: start: 20120823, end: 2012
  3. LYRICA [Suspect]
     Dosage: 50 mg, 1x/day
     Route: 048
     Dates: start: 2012, end: 2012
  4. LYRICA [Suspect]
     Dosage: 50 mg, 2x/day
     Route: 048
     Dates: start: 2012, end: 2012
  5. LYRICA [Suspect]
     Dosage: 75mg at night and 25mg in morning
     Route: 048
     Dates: start: 2012, end: 2012
  6. LYRICA [Suspect]
     Dosage: 75mg at night and 50mg in morning
     Route: 048
     Dates: start: 2012
  7. LYRICA [Suspect]
     Dosage: UNK
     Route: 048
  8. CYMBALTA [Concomitant]
     Indication: DEPRESSION
     Dosage: UNK
  9. VESICARE [Concomitant]
     Indication: URINARY INCONTINENCE
     Dosage: UNK
  10. MIRALAX [Concomitant]
     Indication: CONSTIPATION
     Dosage: UNK
  11. OXYCODONE [Concomitant]
     Indication: PAIN
     Dosage: UNK, 3x/day

REACTIONS (7)
  - Terminal insomnia [Unknown]
  - Middle insomnia [Unknown]
  - Malaise [Recovered/Resolved]
  - Nausea [Recovered/Resolved]
  - Asthenia [Recovered/Resolved]
  - Diarrhoea [Recovered/Resolved]
  - Constipation [Unknown]
